FAERS Safety Report 25808724 (Version 1)
Quarter: 2025Q3

REPORT INFORMATION
  Report Type: Spontaneous
  Country: US (occurrence: US)
  Receive Date: 20250916
  Receipt Date: 20250916
  Transmission Date: 20251021
  Serious: No
  Sender: MYLAN
  Company Number: US-MYLANLABS-2025M1075388

PATIENT
  Sex: Female

DRUGS (4)
  1. TYRVAYA [Suspect]
     Active Substance: VARENICLINE TARTRATE
     Indication: Dry eye
  2. TYRVAYA [Suspect]
     Active Substance: VARENICLINE TARTRATE
     Route: 065
  3. TYRVAYA [Suspect]
     Active Substance: VARENICLINE TARTRATE
     Route: 065
  4. TYRVAYA [Suspect]
     Active Substance: VARENICLINE TARTRATE

REACTIONS (1)
  - Drug ineffective [Unknown]
